FAERS Safety Report 7172675-8 (Version None)
Quarter: 2010Q4

REPORT INFORMATION
  Report Type: 
  Country: None (occurrence: None)
  Receive Date: 20101217
  Receipt Date: 20101207
  Transmission Date: 20110411
  Serious: Yes (Other)
  Sender: FDA-Public Use
  Company Number: US-AMGEN-USASP2010005800

PATIENT

DRUGS (2)
  1. ENBREL [Suspect]
     Indication: RHEUMATOID ARTHRITIS
     Dosage: 50 MG, QWK
     Dates: start: 20051117
  2. ENBREL [Suspect]
     Dosage: 25 MG, QWK

REACTIONS (5)
  - ARTHRALGIA [None]
  - BACK PAIN [None]
  - MALIGNANT MELANOMA [None]
  - MUSCULOSKELETAL PAIN [None]
  - NECK PAIN [None]
